FAERS Safety Report 17202885 (Version 2)
Quarter: 2021Q1

REPORT INFORMATION
  Report Type: Spontaneous
  Country: US (occurrence: US)
  Receive Date: 20191226
  Receipt Date: 20210219
  Transmission Date: 20210419
  Serious: Yes (Hospitalization, Other)
  Sender: FDA-Public Use
  Company Number: US-ASTRAZENECA-2019SF85849

PATIENT
  Age: 726 Month
  Sex: Female
  Weight: 83.5 kg

DRUGS (56)
  1. TUMS [Concomitant]
     Active Substance: CALCIUM CARBONATE
     Dosage: ONCE DAILY
     Dates: start: 2016, end: 2018
  2. CLARITHROMYCIN. [Concomitant]
     Active Substance: CLARITHROMYCIN
     Dosage: ONCE DAILY
     Dates: start: 2016, end: 2018
  3. AMOXICILLIN. [Concomitant]
     Active Substance: AMOXICILLIN
     Dosage: ONCE DAILY
     Dates: start: 2016, end: 2018
  4. GABAPENTIN. [Concomitant]
     Active Substance: GABAPENTIN
     Dosage: ONCE DAILY
     Dates: start: 2016, end: 2018
  5. PROVENTIL [Concomitant]
     Active Substance: ALBUTEROL
     Dosage: ONCE DAILY
     Dates: start: 2016, end: 2018
  6. HYDROCHLOROTHIAZIDE. [Concomitant]
     Active Substance: HYDROCHLOROTHIAZIDE
     Dosage: ONCE DAILY
     Dates: start: 2016, end: 2018
  7. NEURONTIN [Concomitant]
     Active Substance: GABAPENTIN
     Dosage: ONCE DAILY
     Dates: start: 2016, end: 2018
  8. PRILOSEC [Suspect]
     Active Substance: OMEPRAZOLE MAGNESIUM
     Indication: GASTROOESOPHAGEAL REFLUX DISEASE
     Route: 048
     Dates: start: 201501, end: 201801
  9. VITAMIN B [Concomitant]
     Active Substance: VITAMIN B
     Indication: ENERGY INCREASED
     Dates: start: 201801
  10. PEPTO?BISMOL [Concomitant]
     Active Substance: BISMUTH SUBSALICYLATE
     Dosage: ONCE DAILY
     Dates: start: 2016, end: 2018
  11. CEPHALEXIN. [Concomitant]
     Active Substance: CEPHALEXIN
     Dosage: ONCE DAILY
     Dates: start: 2016, end: 2018
  12. PREDNISONE. [Concomitant]
     Active Substance: PREDNISONE
     Dosage: ONCE DAILY
     Dates: start: 2016, end: 2018
  13. ONDANSETRON [Concomitant]
     Active Substance: ONDANSETRON
     Dosage: ONCE DAILY
     Dates: start: 2016, end: 2018
  14. VENTOLIN HFA [Concomitant]
     Active Substance: ALBUTEROL SULFATE
     Dosage: ONCE DAILY
     Dates: start: 2016, end: 2018
  15. BACLOFEN. [Concomitant]
     Active Substance: BACLOFEN
     Dosage: ONCE DAILY
     Dates: start: 2016, end: 2018
  16. PREVACID [Suspect]
     Active Substance: LANSOPRAZOLE
     Indication: GASTROOESOPHAGEAL REFLUX DISEASE
     Dosage: MR
     Route: 048
     Dates: start: 20100101
  17. LORATADINE. [Concomitant]
     Active Substance: LORATADINE
     Dosage: ONCE DAILY
     Dates: start: 2016, end: 2018
  18. FLUZONE [Concomitant]
     Active Substance: INFLUENZA A VIRUS A/CALIFORNIA/7/2009 X-179A (H1N1) ANTIGEN (FORMALDEHYDE INACTIVATED)\INFLUENZA A VIRUS A/VICTORIA/210/2009 X-187 (H3N2) ANTIGEN (FORMALDEHYDE INACTIVATED)\INFLUENZA B VIRUS B/BRISBANE/60/2008 ANTIGEN (FORMALDEHYDE INACTIVATED)
     Dosage: ONCE DAILY
     Dates: start: 2016, end: 2018
  19. AMLODIPINE [Concomitant]
     Active Substance: AMLODIPINE BESYLATE
     Dosage: ONCE DAILY
     Dates: start: 2016, end: 2018
  20. COZAAR [Concomitant]
     Active Substance: LOSARTAN POTASSIUM
     Dosage: ONCE DAILY
     Dates: start: 2016, end: 2018
  21. NEXIUM [Suspect]
     Active Substance: ESOMEPRAZOLE MAGNESIUM
     Indication: GASTROOESOPHAGEAL REFLUX DISEASE
     Route: 048
     Dates: start: 201501, end: 201801
  22. NEXIUM [Suspect]
     Active Substance: ESOMEPRAZOLE MAGNESIUM
     Indication: GASTROOESOPHAGEAL REFLUX DISEASE
     Route: 048
     Dates: start: 2011, end: 2020
  23. ALPRAZOLAM. [Concomitant]
     Active Substance: ALPRAZOLAM
     Dosage: ONCE DAILY
     Dates: start: 2016, end: 2018
  24. NAPROXEN. [Concomitant]
     Active Substance: NAPROXEN
     Dosage: ONCE DAILY
     Dates: start: 2016, end: 2018
  25. NASONEX [Concomitant]
     Active Substance: MOMETASONE FUROATE
     Dosage: ONCE DAILY
     Dates: start: 2016, end: 2018
  26. SINGULAIR [Concomitant]
     Active Substance: MONTELUKAST SODIUM
     Dosage: ONCE DAILY
     Dates: start: 2016, end: 2018
  27. PRILOSEC OTC [Suspect]
     Active Substance: OMEPRAZOLE MAGNESIUM
     Indication: GASTROOESOPHAGEAL REFLUX DISEASE
     Dosage: RECOMMNDED DOSAGE
     Route: 048
     Dates: end: 201803
  28. PREVACID [Suspect]
     Active Substance: LANSOPRAZOLE
     Indication: GASTROOESOPHAGEAL REFLUX DISEASE
     Route: 065
     Dates: start: 201501, end: 201801
  29. BOOSTRIX [Concomitant]
     Active Substance: TETANUS TOXOID, REDUCED DIPHTHERIA TOXOID AND ACELLULAR PERTUSSIS VACCINE, ADSORBED ANTIGENS
     Dosage: ONCE DAILY
     Dates: start: 2016, end: 2018
  30. ZOLPIDEM [Concomitant]
     Active Substance: ZOLPIDEM TARTRATE
     Dosage: ONCE DAILY
     Dates: start: 2016, end: 2018
  31. DEXAMETHASONE. [Concomitant]
     Active Substance: DEXAMETHASONE
     Dosage: ONCE DAILY
     Dates: start: 2016, end: 2018
  32. GABAPENTIN. [Concomitant]
     Active Substance: GABAPENTIN
     Dosage: ONCE DAILY
     Dates: start: 2016, end: 2018
  33. DILTIAZEM. [Concomitant]
     Active Substance: DILTIAZEM
     Dosage: ONCE DAILY
     Dates: start: 2016, end: 2018
  34. VOLTAREN [Concomitant]
     Active Substance: DICLOFENAC SODIUM
     Dosage: ONCE DAILY
     Dates: start: 2016, end: 2018
  35. CRESTOR [Concomitant]
     Active Substance: ROSUVASTATIN CALCIUM
     Dosage: ONCE DAILY
     Dates: start: 2016, end: 2018
  36. NEXIUM 24HR [Suspect]
     Active Substance: ESOMEPRAZOLE MAGNESIUM
     Indication: GASTROOESOPHAGEAL REFLUX DISEASE
     Route: 048
     Dates: start: 201501, end: 201801
  37. PRILOSEC [Suspect]
     Active Substance: OMEPRAZOLE MAGNESIUM
     Indication: GASTROOESOPHAGEAL REFLUX DISEASE
     Dosage: DO NOT RECALL?CURRENT
     Route: 048
  38. PRILOSEC [Suspect]
     Active Substance: OMEPRAZOLE MAGNESIUM
     Indication: GASTROOESOPHAGEAL REFLUX DISEASE
     Dosage: MR
     Route: 048
  39. TRIAMTERENE. [Concomitant]
     Active Substance: TRIAMTERENE
     Dosage: ONCE DAILY
     Dates: start: 2016, end: 2018
  40. SERTRALINE [Concomitant]
     Active Substance: SERTRALINE HYDROCHLORIDE
     Dosage: ONCE DAILY
     Dates: start: 2016, end: 2018
  41. ADVAIR HFA [Concomitant]
     Active Substance: FLUTICASONE PROPIONATE\SALMETEROL XINAFOATE
     Dosage: ONCE DAILY
     Dates: start: 2016, end: 2018
  42. PREVACID [Suspect]
     Active Substance: LANSOPRAZOLE
     Indication: GASTROOESOPHAGEAL REFLUX DISEASE
     Route: 065
     Dates: start: 201803
  43. OXYCODONE [Concomitant]
     Active Substance: OXYCODONE
     Dosage: ONCE DAILY
     Dates: start: 2016, end: 2018
  44. PROMETHAZINE [Concomitant]
     Active Substance: PROMETHAZINE HYDROCHLORIDE
     Dosage: ONCE DAILY
     Dates: start: 2016, end: 2018
  45. LISINOPRIL. [Concomitant]
     Active Substance: LISINOPRIL
     Dosage: ONCE DAILY
     Dates: start: 2016, end: 2018
  46. PERCOCET [Concomitant]
     Active Substance: ACETAMINOPHEN\OXYCODONE HYDROCHLORIDE
     Dosage: ONCE DAILY
     Dates: start: 2016, end: 2018
  47. ECOTRIN [Concomitant]
     Active Substance: ASPIRIN
     Dosage: ONCE DAILY
     Dates: start: 2016, end: 2018
  48. KEFLEX [Concomitant]
     Active Substance: CEPHALEXIN
     Dosage: ONCE DAILY
     Dates: start: 2016, end: 2018
  49. MONTELUKAST [Concomitant]
     Active Substance: MONTELUKAST SODIUM
     Dosage: ONCE DAILY
     Dates: start: 2016, end: 2018
  50. TIZANIDINE. [Concomitant]
     Active Substance: TIZANIDINE
     Dosage: ONCE DAILY
     Dates: start: 2016, end: 2018
  51. NEXIUM [Suspect]
     Active Substance: ESOMEPRAZOLE MAGNESIUM
     Indication: GASTROOESOPHAGEAL REFLUX DISEASE
     Dosage: MR
     Route: 048
     Dates: start: 20190119
  52. PRILOSEC OTC [Suspect]
     Active Substance: OMEPRAZOLE MAGNESIUM
     Indication: GASTROOESOPHAGEAL REFLUX DISEASE
     Route: 048
     Dates: start: 201501, end: 201801
  53. POTASSIUM [Concomitant]
     Active Substance: POTASSIUM
     Indication: BLOOD PRESSURE ABNORMAL
     Dates: start: 202008
  54. LITHIUM CARBONATE. [Concomitant]
     Active Substance: LITHIUM CARBONATE
     Dosage: ONCE DAILY
     Dates: start: 2016, end: 2018
  55. SULFAMETHOXAZOLE [Concomitant]
     Active Substance: SULFAMETHOXAZOLE
     Dosage: ONCE DAILY
     Dates: start: 2016, end: 2018
  56. PHENERGAN [Concomitant]
     Active Substance: PROMETHAZINE HYDROCHLORIDE
     Dosage: ONCE DAILY
     Dates: start: 2016, end: 2018

REACTIONS (2)
  - Chronic kidney disease [Not Recovered/Not Resolved]
  - Gastrooesophageal reflux disease [Not Recovered/Not Resolved]

NARRATIVE: CASE EVENT DATE: 201806
